FAERS Safety Report 7058997-X (Version None)
Quarter: 2010Q4

REPORT INFORMATION
  Report Type: 
  Country: None (occurrence: None)
  Receive Date: 20101025
  Receipt Date: 20101015
  Transmission Date: 20110411
  Serious: Yes (Hospitalization)
  Sender: FDA-Public Use
  Company Number: US-BIOGENIDEC-2010BI035916

PATIENT
  Age: 25 Year
  Sex: Female

DRUGS (1)
  1. TYSABRI [Suspect]
     Indication: MULTIPLE SCLEROSIS
     Route: 042
     Dates: start: 20100614, end: 20100712

REACTIONS (5)
  - BENIGN INTRACRANIAL HYPERTENSION [None]
  - BRONCHITIS [None]
  - CONDITION AGGRAVATED [None]
  - MENINGITIS VIRAL [None]
  - PLEURISY [None]
